FAERS Safety Report 9493691 (Version 3)
Quarter: 2014Q1

REPORT INFORMATION
  Report Type: Spontaneous
  Country: FR (occurrence: FR)
  Receive Date: 20130902
  Receipt Date: 20140213
  Transmission Date: 20141002
  Serious: Yes (Hospitalization)
  Sender: FDA-Public Use
  Company Number: PHHY2013FR093491

PATIENT
  Age: 44 Year
  Sex: Female

DRUGS (6)
  1. SANMIGRAN [Suspect]
     Indication: MIGRAINE
     Dosage: UNK UKN, UNK
  2. KETOPROFEN [Suspect]
     Dosage: BIW OR TIW
     Route: 048
  3. RELPAX [Suspect]
     Route: 048
  4. AVLOCARDYL [Suspect]
     Dosage: PUNCTUAL INTAKE
     Route: 048
  5. EFFEXOR [Suspect]
     Dosage: PUNCTUAL INTAKE
     Route: 048
  6. EUPANTOL [Concomitant]
     Dosage: PUNCTUAL INTAKE
     Route: 048

REACTIONS (5)
  - Chest pain [Recovered/Resolved]
  - Dyspnoea [Recovered/Resolved]
  - Melaena [Recovered/Resolved]
  - Anaemia [Recovered/Resolved]
  - Gastric ulcer [Recovered/Resolved]
